FAERS Safety Report 14749731 (Version 1)
Quarter: 2018Q2

REPORT INFORMATION
  Report Type: Report from Study
  Country: None (occurrence: US)
  Receive Date: 20180412
  Receipt Date: 20180412
  Transmission Date: 20180711
  Serious: Yes (Other)
  Sender: FDA-Public Use
  Company Number: US-ABBVIE-18K-163-2309662-00

PATIENT
  Age: 32 Year
  Sex: Female

DRUGS (3)
  1. HUMIRA [Suspect]
     Active Substance: ADALIMUMAB
     Indication: JUVENILE IDIOPATHIC ARTHRITIS
     Route: 058
     Dates: start: 201801, end: 20180307
  2. HUMIRA [Suspect]
     Active Substance: ADALIMUMAB
     Indication: UVEITIS
  3. HUMIRA [Suspect]
     Active Substance: ADALIMUMAB
     Indication: CHORIORETINITIS

REACTIONS (8)
  - Rubber sensitivity [Unknown]
  - Kidney infection [Not Recovered/Not Resolved]
  - Urinary tract infection [Recovered/Resolved]
  - Upper respiratory tract infection [Recovered/Resolved]
  - Renal haemorrhage [Unknown]
  - Headache [Recovered/Resolved]
  - Renal pain [Unknown]
  - Sinusitis [Unknown]

NARRATIVE: CASE EVENT DATE: 2018
